FAERS Safety Report 9797931 (Version 1)
Quarter: 2014Q1

REPORT INFORMATION
  Report Type: Not Available
  Country: IT (occurrence: IT)
  Receive Date: 20140106
  Receipt Date: 20140106
  Transmission Date: 20141002
  Serious: Yes (Hospitalization)
  Sender: FDA-Public Use
  Company Number: IT-ASTELLAS-2014US000004

PATIENT
  Age: 69 Year
  Sex: Male

DRUGS (1)
  1. TARCEVA [Suspect]
     Indication: ADENOSQUAMOUS CELL LUNG CANCER
     Dosage: 150 MG, UID/QD
     Route: 048

REACTIONS (3)
  - Pleural effusion [Recovered/Resolved with Sequelae]
  - Bronchopneumonia [Recovered/Resolved with Sequelae]
  - Toxic skin eruption [Recovered/Resolved with Sequelae]
